FAERS Safety Report 23427580 (Version 1)
Quarter: 2024Q1

REPORT INFORMATION
  Report Type: Spontaneous
  Country: US (occurrence: None)
  Receive Date: 20240119
  Receipt Date: 20240119
  Transmission Date: 20240409
  Serious: Yes (unspecified)
  Sender: FDA-Public Use
  Company Number: None

PATIENT
  Age: 69 Year
  Sex: Female
  Weight: 119.25 kg

DRUGS (2)
  1. WEGOVY [Suspect]
     Active Substance: SEMAGLUTIDE
     Dosage: OTHER FREQUENCY : WEEKLY;?
     Route: 058
     Dates: start: 20230729
  2. WEGOVY [Concomitant]
     Active Substance: SEMAGLUTIDE
     Dates: start: 20230728

REACTIONS (1)
  - Skin wrinkling [None]

NARRATIVE: CASE EVENT DATE: 20240118
